FAERS Safety Report 12792203 (Version 1)
Quarter: 2016Q3

REPORT INFORMATION
  Report Type: Spontaneous
  Country: US (occurrence: US)
  Receive Date: 20160926
  Receipt Date: 20160926
  Transmission Date: 20161109
  Serious: Yes (Hospitalization)
  Sender: FDA-Public Use
  Company Number: None

PATIENT
  Age: 54 Year
  Sex: Male
  Weight: 107.96 kg

DRUGS (2)
  1. CLOZARIL [Suspect]
     Active Substance: CLOZAPINE
     Indication: SCHIZOAFFECTIVE DISORDER BIPOLAR TYPE
     Dosage: CLOZARIL 100 MG - [FREQUENCY - AM]
     Route: 048
     Dates: start: 20160407
  2. CLOZARIL [Suspect]
     Active Substance: CLOZAPINE
     Indication: ANXIETY DISORDER
     Dosage: CLOZARIL 100 MG - [FREQUENCY - AM]
     Route: 048
     Dates: start: 20160407

REACTIONS (1)
  - Intestinal obstruction [None]

NARRATIVE: CASE EVENT DATE: 20160413
